FAERS Safety Report 23231470 (Version 1)
Quarter: 2023Q4

REPORT INFORMATION
  Report Type: Spontaneous
  Country: US (occurrence: US)
  Receive Date: 20231127
  Receipt Date: 20231127
  Transmission Date: 20240110
  Serious: No
  Sender: FDA-Public Use
  Company Number: US-AVADEL CNS PHARMACEUTICALS, LLC-2023AVA00247

PATIENT
  Sex: Male

DRUGS (2)
  1. LUMRYZ [Suspect]
     Active Substance: SODIUM OXYBATE
     Indication: Narcolepsy
     Dosage: 4.5 G, 1X/DAY
     Route: 048
     Dates: start: 202309
  2. WAKIX [Concomitant]
     Active Substance: PITOLISANT HYDROCHLORIDE

REACTIONS (3)
  - Gastrointestinal disorder [Not Recovered/Not Resolved]
  - Nausea [Recovering/Resolving]
  - Headache [Recovered/Resolved]

NARRATIVE: CASE EVENT DATE: 20230101
